FAERS Safety Report 4363330-8 (Version None)
Quarter: 2004Q2

REPORT INFORMATION
  Report Type: 
  Country: None (occurrence: None)
  Receive Date: 20040519
  Receipt Date: 20040510
  Transmission Date: 20050107
  Serious: Yes (Other)
  Sender: FDA-Public Use
  Company Number: 2004031197

PATIENT
  Sex: Male

DRUGS (1)
  1. CHLORPROPAMIDE [Suspect]
     Indication: DIABETES MELLITUS

REACTIONS (1)
  - CEREBRAL INFARCTION [None]
